FAERS Safety Report 18657488 (Version 1)
Quarter: 2020Q4

REPORT INFORMATION
  Report Type: Spontaneous
  Country: DE (occurrence: DE)
  Receive Date: 20201223
  Receipt Date: 20201223
  Transmission Date: 20210114
  Serious: Yes (Hospitalization)
  Sender: FDA-Public Use
  Company Number: DE-009507513-2012DEU008405

PATIENT
  Age: 68 Year
  Sex: Female

DRUGS (16)
  1. SPIRIVA [Concomitant]
     Active Substance: TIOTROPIUM BROMIDE MONOHYDRATE
     Dosage: 18 MICROGRAM, 1-0-0-0, INHALATION CAPSULES
     Route: 055
  2. TORSEMIDE. [Concomitant]
     Active Substance: TORSEMIDE
     Dosage: 10 MG, 2-1-0-0, TABLETS
  3. INSULIN ASPART [Concomitant]
     Active Substance: INSULIN ASPART
     Dosage: DEPENDING ON BLOOD SUGAR, SOLUTION FOR INJECTION / INFUSION
     Route: 058
  4. INSULIN GLARGINE [Concomitant]
     Active Substance: INSULIN GLARGINE
     Dosage: 5 IE, 0-0-1-0, SOLUTION FOR INJECTION / INFUSION
     Route: 058
  5. BISOPROLOL [Concomitant]
     Active Substance: BISOPROLOL
     Dosage: 2.5 MG, 0-1-0-0, TABLETS
  6. ATORVASTATIN [Concomitant]
     Active Substance: ATORVASTATIN
     Dosage: 40 MG, 0-0-1-0, TABLETS
  7. ASS 100 [Concomitant]
     Active Substance: ASPIRIN
     Dosage: 100 MG, 1-0-0-0, TABLETS
  8. ALLOPURINOL. [Concomitant]
     Active Substance: ALLOPURINOL
     Dosage: 100 MG, 1-0-0-0, TABLETS
  9. MIRTAZAPINE. [Suspect]
     Active Substance: MIRTAZAPINE
     Dosage: 30 MG, 0-0-0-0.5, TABLETS
  10. TRAMADOL HYDROCHLORIDE. [Concomitant]
     Active Substance: TRAMADOL HYDROCHLORIDE
     Dosage: 50 MG, AS NEEDED, TABLETS
  11. PANTOPRAZOLE [Concomitant]
     Active Substance: PANTOPRAZOLE
     Dosage: 20 MG, 1-0-0-0, TABLETS
  12. CANDESARTAN. [Concomitant]
     Active Substance: CANDESARTAN
     Dosage: 4 MG, 1-0-0-0, TABLETS
  13. NALOXONE HYDROCHLORIDE (+) TILIDINE HYDROCHLORIDE [Concomitant]
     Active Substance: NALOXONE HYDROCHLORIDE\TILIDINE HYDROCHLORIDE
     Dosage: 4|50 MG, AS NEEDED, PROLONGED-RELEASE TABLET
  14. FORMATRIS [Concomitant]
     Active Substance: FORMOTEROL FUMARATE
     Dosage: 12 MICROGRAM, 1-0-1-0, INHALATION CAPSULES
     Route: 055
  15. IMIPRAMINE [Suspect]
     Active Substance: IMIPRAMINE
     Dosage: 25 MG, 1-0-1-0, TABLETS
  16. FERRIC OXIDE [Concomitant]
     Active Substance: FERRIC OXIDE RED
     Dosage: 100 MG, 1-0-0-0, CAPSULE

REACTIONS (4)
  - Oedema peripheral [Unknown]
  - Urinary hesitation [Unknown]
  - Cough [Unknown]
  - Anuria [Unknown]
